FAERS Safety Report 8121367-7 (Version None)
Quarter: 2012Q1

REPORT INFORMATION
  Report Type: 
  Country: None (occurrence: None)
  Receive Date: 20120208
  Receipt Date: 20120131
  Transmission Date: 20120608
  Serious: Yes (Other)
  Sender: FDA-Public Use
  Company Number: US-US-EMD SERONO, INC.-7014246

PATIENT
  Sex: Female
  Weight: 77 kg

DRUGS (15)
  1. BACLOFEN [Concomitant]
     Indication: PAIN
  2. CITALOPRAM [Concomitant]
  3. REBIF [Suspect]
     Indication: RELAPSING-REMITTING MULTIPLE SCLEROSIS
     Route: 058
     Dates: start: 20071226
  4. ALTACE [Concomitant]
  5. VENTOLIN HFA [Concomitant]
  6. GABAPENTIN [Concomitant]
  7. AMLODIPINE [Concomitant]
     Indication: HYPERTENSION
  8. NORTRIPTYLINE HCL [Concomitant]
     Indication: SLEEP DISORDER
  9. ATENOLOL [Concomitant]
     Indication: HYPERTENSION
  10. HYDROCODONE BITARTRATE [Concomitant]
     Indication: PAIN
  11. IBUPROFEN [Concomitant]
     Indication: PAIN
  12. FLONASE [Concomitant]
  13. COLACE [Concomitant]
  14. LOVASTATIN [Concomitant]
  15. MIGRAINE MEDICATION [Concomitant]
     Indication: MIGRAINE

REACTIONS (5)
  - DIZZINESS [None]
  - OCCIPITAL NEURALGIA [None]
  - FLANK PAIN [None]
  - CENTRAL NERVOUS SYSTEM LESION [None]
  - AMNESIA [None]
